FAERS Safety Report 14915418 (Version 1)
Quarter: 2018Q2

REPORT INFORMATION
  Report Type: Spontaneous
  Country: FR (occurrence: FR)
  Receive Date: 20180518
  Receipt Date: 20180518
  Transmission Date: 20180711
  Serious: Yes (Hospitalization)
  Sender: FDA-Public Use
  Company Number: PHHY2018FR002356

PATIENT
  Age: 71 Year
  Sex: Male

DRUGS (14)
  1. CLAFORAN [Suspect]
     Active Substance: CEFOTAXIME SODIUM
     Dosage: 2.5 G, QD
     Route: 042
     Dates: start: 20180129
  2. TAVANIC [Suspect]
     Active Substance: LEVOFLOXACIN
     Indication: DEVICE RELATED INFECTION
     Dosage: 3 G, QD
     Route: 048
     Dates: start: 20180106
  3. LASILIX [Concomitant]
     Active Substance: FUROSEMIDE
     Dosage: 125 MG, QD (LAST ADMINISTRATION)
     Route: 042
     Dates: start: 201712
  4. AMIKACINE MYLAN [Suspect]
     Active Substance: AMIKACIN
     Dosage: 500 MG, QD
     Route: 042
     Dates: start: 20180109
  5. VANCOMYCIN [Suspect]
     Active Substance: VANCOMYCIN
     Indication: DEVICE RELATED INFECTION
     Dosage: 1 G, QD
     Route: 042
     Dates: start: 20180106
  6. VANCOMYCIN [Suspect]
     Active Substance: VANCOMYCIN
     Dosage: 1 G, QD
     Route: 042
     Dates: start: 20180119
  7. TAVANIC [Suspect]
     Active Substance: LEVOFLOXACIN
     Dosage: 3 G, QD
     Route: 048
     Dates: start: 20180129
  8. PREVISCAN (FLUINDIONE) [Concomitant]
     Active Substance: FLUINDIONE
     Dosage: 20 MG, QD
     Route: 048
     Dates: start: 20180215
  9. LASILIX [Concomitant]
     Active Substance: FUROSEMIDE
     Indication: FLUID RETENTION
     Dosage: 125 MG, QD
     Route: 042
     Dates: start: 201712
  10. DILTIAZEM (CHLORHYDRATE DE) [Concomitant]
     Indication: HYPERTENSION
     Dosage: 180 MG, QD
     Route: 048
  11. AMIKACINE MYLAN [Suspect]
     Active Substance: AMIKACIN
     Indication: DEVICE RELATED INFECTION
     Dosage: 500 MG, QD
     Route: 042
     Dates: start: 20180106
  12. PREVISCAN (FLUINDIONE) [Concomitant]
     Active Substance: FLUINDIONE
     Indication: ATRIAL FIBRILLATION
     Dosage: 20 MG, QD
     Route: 048
  13. CLAFORAN [Suspect]
     Active Substance: CEFOTAXIME SODIUM
     Indication: DEVICE RELATED INFECTION
     Dosage: 2.5 G, QD
     Route: 042
     Dates: start: 20180106
  14. DILTIAZEM (CHLORHYDRATE DE) [Concomitant]
     Dosage: 180 MG, QD (LAST ADMNISTRATION)
     Route: 048
     Dates: start: 20180201

REACTIONS (2)
  - Toxic skin eruption [Recovered/Resolved]
  - Acute kidney injury [Recovered/Resolved]

NARRATIVE: CASE EVENT DATE: 20180110
